FAERS Safety Report 7943218-3 (Version None)
Quarter: 2011Q4

REPORT INFORMATION
  Report Type: 
  Country: None (occurrence: None)
  Receive Date: 20111122
  Receipt Date: 20110623
  Transmission Date: 20120403
  Serious: Yes (Other)
  Sender: FDA-Public Use
  Company Number: PHHY2011US40217

PATIENT
  Age: 47 Year
  Sex: Female

DRUGS (6)
  1. TOPAMAX [Concomitant]
  2. ADDERALL XR (AMFETAMINE ASPARTATE, AMFETAMINE SULFATE, DEXAMFETAMINE S [Concomitant]
  3. ABILIFY [Concomitant]
  4. PROVIGIL [Concomitant]
  5. PAXIL [Concomitant]
  6. GILENYA [Suspect]
     Indication: MULTIPLE SCLEROSIS
     Dosage: 0.5 MG, QD, ORAL
     Route: 048
     Dates: start: 20110217

REACTIONS (1)
  - MULTIPLE SCLEROSIS RELAPSE [None]
